FAERS Safety Report 12722183 (Version 2)
Quarter: 2017Q4

REPORT INFORMATION
  Report Type: Spontaneous
  Country: CN (occurrence: CN)
  Receive Date: 20160907
  Receipt Date: 20171127
  Transmission Date: 20180320
  Serious: Yes (Other)
  Sender: FDA-Public Use
  Company Number: CN-JNJFOC-20160827943

PATIENT
  Age: 57 Year
  Sex: Female

DRUGS (2)
  1. SPORANOX [Suspect]
     Active Substance: ITRACONAZOLE
     Indication: ECZEMA
     Route: 065
     Dates: start: 20160720
  2. SPORANOX [Suspect]
     Active Substance: ITRACONAZOLE
     Indication: ECZEMA
     Route: 065
     Dates: start: 20160820, end: 20160826

REACTIONS (3)
  - Cerebrovascular disorder [Unknown]
  - Dizziness [Unknown]
  - Drug ineffective for unapproved indication [Unknown]
